FAERS Safety Report 4369960-1 (Version None)
Quarter: 2004Q2

REPORT INFORMATION
  Report Type: 
  Country: None (occurrence: None)
  Receive Date: 20040603
  Receipt Date: 20040414
  Transmission Date: 20050107
  Serious: Yes (Life-Threatening, Hospitalization)
  Sender: FDA-Public Use
  Company Number: PHHO2004JP05614

PATIENT
  Age: 63 Year
  Sex: Male
  Weight: 66 kg

DRUGS (6)
  1. DIOVAN [Suspect]
     Dosage: 80 MG, QD
     Route: 048
     Dates: start: 20030309, end: 20030331
  2. DIOVAN [Suspect]
     Dosage: NO MEDICATION
     Dates: start: 20030401, end: 20030517
  3. DIOVAN [Suspect]
     Dosage: 80 MG, QD
     Route: 048
     Dates: start: 20030518
  4. BAYASPIRIN [Suspect]
     Indication: ATRIAL FIBRILLATION
     Dosage: UNK, UNK
     Dates: start: 20030309, end: 20030331
  5. DIGOXIN [Concomitant]
     Dates: end: 20030331
  6. ADALAT [Concomitant]
     Indication: HYPERTENSION

REACTIONS (9)
  - DIZZINESS [None]
  - FAECES DISCOLOURED [None]
  - GASTRIC ULCER HAEMORRHAGE [None]
  - HAEMATEMESIS [None]
  - HYPOTENSION [None]
  - MELAENA [None]
  - NAUSEA [None]
  - SHOCK HAEMORRHAGIC [None]
  - THERAPEUTIC PROCEDURE [None]
